FAERS Safety Report 7396401-2 (Version None)
Quarter: 2011Q1

REPORT INFORMATION
  Report Type: 
  Country: None (occurrence: None)
  Receive Date: 20110331
  Receipt Date: 20110331
  Transmission Date: 20110831
  Serious: Yes (Disabling, Other)
  Sender: FDA-Public Use
  Company Number: None

PATIENT
  Age: 18 Year
  Sex: Female
  Weight: 65.9 kg

DRUGS (1)
  1. LUPRON DEPOT [Suspect]
     Indication: DYSMENORRHOEA
     Dosage: LUPRON DEPOT SHOT 3 MONTHS INJECTION
     Dates: start: 20100101, end: 20110101

REACTIONS (11)
  - NIGHT SWEATS [None]
  - HALLUCINATIONS, MIXED [None]
  - WEIGHT INCREASED [None]
  - MIGRAINE [None]
  - NEUROTRANSMITTER LEVEL ALTERED [None]
  - DEPRESSION SUICIDAL [None]
  - ARTHRALGIA [None]
  - PANIC ATTACK [None]
  - HOT FLUSH [None]
  - INSOMNIA [None]
  - PSYCHOTIC DISORDER [None]
